FAERS Safety Report 5965756-5 (Version None)
Quarter: 2008Q4

REPORT INFORMATION
  Report Type: 
  Country: None (occurrence: None)
  Receive Date: 20081125
  Receipt Date: 20081118
  Transmission Date: 20090506
  Serious: Yes (Life-Threatening)
  Sender: FDA-Public Use
  Company Number: B0547634A

PATIENT
  Age: 1 Year
  Sex: Male

DRUGS (1)
  1. AUGMENTIN '125' [Suspect]
     Indication: PHARYNGOTONSILLITIS
     Dosage: 3ML SINGLE DOSE
     Route: 048
     Dates: start: 20081117, end: 20081117

REACTIONS (7)
  - ERYTHEMA [None]
  - HYPERAEMIA [None]
  - JOINT SWELLING [None]
  - LOCALISED OEDEMA [None]
  - OEDEMA PERIPHERAL [None]
  - URTICARIA [None]
  - VOMITING [None]
